FAERS Safety Report 10924632 (Version 2)
Quarter: 2015Q2

REPORT INFORMATION
  Report Type: Spontaneous
  Country: US (occurrence: US)
  Receive Date: 20150318
  Receipt Date: 20150524
  Transmission Date: 20150821
  Serious: No
  Sender: FDA-Public Use
  Company Number: US-JNJFOC-20130901878

PATIENT
  Age: 55 Year
  Sex: Male
  Weight: 81.65 kg

DRUGS (1)
  1. KETOCONAZOLE 2% [Suspect]
     Active Substance: KETOCONAZOLE
     Indication: DRY SKIN
     Route: 061
     Dates: start: 20121031

REACTIONS (1)
  - Rash [Not Recovered/Not Resolved]

NARRATIVE: CASE EVENT DATE: 201308
